FAERS Safety Report 6604207-4 (Version None)
Quarter: 2010Q1

REPORT INFORMATION
  Report Type: 
  Country: None (occurrence: None)
  Receive Date: 20100226
  Receipt Date: 20090627
  Transmission Date: 20100710
  Serious: No
  Sender: FDA-Public Use
  Company Number: A0795335A

PATIENT
  Age: 20 Year
  Sex: Male

DRUGS (1)
  1. LAMICTAL CD [Suspect]
     Route: 048

REACTIONS (3)
  - DYSPHAGIA [None]
  - PRODUCT TASTE ABNORMAL [None]
  - RETCHING [None]
